FAERS Safety Report 16060570 (Version 4)
Quarter: 2025Q3

REPORT INFORMATION
  Report Type: Report from Study
  Country: EU (occurrence: EU)
  Receive Date: 20190312
  Receipt Date: 20250722
  Transmission Date: 20251021
  Serious: Yes (Death, Other)
  Sender: AUROBINDO
  Company Number: EU-AUROBINDO-AUR-APL-2019-012428

PATIENT
  Age: 19 Week

DRUGS (5)
  1. ACETAMINOPHEN [Suspect]
     Active Substance: ACETAMINOPHEN
     Indication: Pericarditis
     Route: 064
  2. PREDNISONE [Suspect]
     Active Substance: PREDNISONE
     Indication: Pericarditis
     Route: 064
  3. PREDNISONE [Suspect]
     Active Substance: PREDNISONE
     Route: 064
  4. PREDNISONE [Suspect]
     Active Substance: PREDNISONE
     Route: 064
  5. PREDNISONE [Suspect]
     Active Substance: PREDNISONE
     Route: 064

REACTIONS (2)
  - Amniotic cavity infection [Fatal]
  - Foetal exposure during pregnancy [Unknown]
